FAERS Safety Report 7647460-0 (Version None)
Quarter: 2011Q3

REPORT INFORMATION
  Report Type: 
  Country: None (occurrence: None)
  Receive Date: 20110801
  Receipt Date: 20110728
  Transmission Date: 20111222
  Serious: Yes (Hospitalization)
  Sender: FDA-Public Use
  Company Number: TR-ABBOTT-11P-161-0838737-00

PATIENT
  Age: 8 Year
  Sex: Female
  Weight: 37 kg

DRUGS (1)
  1. LEUPROLIDE ACETATE [Suspect]
     Indication: PRECOCIOUS PUBERTY
     Route: 030
     Dates: start: 20110614

REACTIONS (1)
  - INCORRECT ROUTE OF DRUG ADMINISTRATION [None]
